FAERS Safety Report 19473660 (Version 1)
Quarter: 2021Q2

REPORT INFORMATION
  Report Type: Spontaneous
  Country: US (occurrence: US)
  Receive Date: 20210629
  Receipt Date: 20210629
  Transmission Date: 20210717
  Serious: Yes (Hospitalization)
  Sender: FDA-Public Use
  Company Number: US-ROCHE-2858331

PATIENT
  Age: 80 Year
  Sex: Female
  Weight: 66.28 kg

DRUGS (2)
  1. ACTEMRA [Suspect]
     Active Substance: TOCILIZUMAB
  2. ACTEMRA [Suspect]
     Active Substance: TOCILIZUMAB
     Indication: GIANT CELL ARTERITIS
     Route: 058
     Dates: start: 202004

REACTIONS (3)
  - Hepatic enzyme increased [Unknown]
  - Balance disorder [Recovering/Resolving]
  - Accident [Unknown]

NARRATIVE: CASE EVENT DATE: 20210426
